FAERS Safety Report 23307239 (Version 1)
Quarter: 2023Q4

REPORT INFORMATION
  Report Type: Spontaneous
  Country: BG (occurrence: BG)
  Receive Date: 20231218
  Receipt Date: 20231218
  Transmission Date: 20240109
  Serious: Yes (Hospitalization, Other)
  Sender: FDA-Public Use
  Company Number: BG-ASTELLAS-2023US037276

PATIENT
  Age: 63 Year
  Sex: Female

DRUGS (5)
  1. XOSPATA [Suspect]
     Active Substance: GILTERITINIB
     Indication: Acute myeloid leukaemia
     Dosage: UNK UNK, UNKNOWN FREQ.
     Route: 065
     Dates: start: 20230103
  2. CYTARABINE [Concomitant]
     Active Substance: CYTARABINE
     Indication: Acute myelomonocytic leukaemia
     Dosage: UNK UNK, UNKNOWN FREQ. (CYTARABINE + DAUNORUBICIN  + GEMTUZUMAB-OZOGAMICIN)
     Route: 065
  3. DAUNORUBICIN [Concomitant]
     Active Substance: DAUNORUBICIN
     Indication: Acute myelomonocytic leukaemia
     Dosage: UNK UNK, UNKNOWN FREQ. (CYTARABINE + DAUNORUBICIN  + GEMTUZUMAB-OZOGAMICIN)
     Route: 065
  4. GEMTUZUMAB OZOGAMICIN [Concomitant]
     Active Substance: GEMTUZUMAB OZOGAMICIN
     Indication: Acute myelomonocytic leukaemia
     Dosage: UNK UNK, UNKNOWN FREQ. (CYTARABINE + DAUNORUBICIN  + GEMTUZUMAB-OZOGAMICIN)
     Route: 065
  5. MIDOSTAURIN [Concomitant]
     Active Substance: MIDOSTAURIN
     Indication: Acute myelomonocytic leukaemia
     Dosage: UNK UNK, UNKNOWN FREQ. (ADMINISTRATED IN A REDUCED DOSE ACCORDING TO SCHEME)
     Route: 065

REACTIONS (2)
  - Myeloblast percentage increased [Unknown]
  - Fatigue [Unknown]

NARRATIVE: CASE EVENT DATE: 20230301
